FAERS Safety Report 20183707 (Version 3)
Quarter: 2021Q4

REPORT INFORMATION
  Report Type: Spontaneous
  Country: US (occurrence: US)
  Receive Date: 20211214
  Receipt Date: 20211230
  Transmission Date: 20220303
  Serious: Yes (Death, Life-Threatening, Hospitalization, Other)
  Sender: FDA-Public Use
  Company Number: US-UNITED THERAPEUTICS-UNT-2021-025232

PATIENT
  Age: 73 Year
  Sex: Female
  Weight: 72.562 kg

DRUGS (4)
  1. REMODULIN [Suspect]
     Active Substance: TREPROSTINIL
     Indication: Pulmonary arterial hypertension
     Dosage: UNK, CONTINUING
     Route: 041
     Dates: start: 20200609
  2. REMODULIN [Suspect]
     Active Substance: TREPROSTINIL
     Dosage: 0.073 ?G/KG, CONTINUING
     Route: 041
  3. TADALAFIL [Concomitant]
     Active Substance: TADALAFIL
     Indication: Product used for unknown indication
     Dosage: UNK
     Route: 065
  4. DILTIAZEM [Concomitant]
     Active Substance: DILTIAZEM
     Indication: Product used for unknown indication
     Dosage: UNK
     Route: 065

REACTIONS (6)
  - Death [Fatal]
  - Respiratory failure [Unknown]
  - Dyspnoea [Unknown]
  - Respiratory tract congestion [Unknown]
  - Tachycardia [Unknown]
  - Haemoptysis [Unknown]

NARRATIVE: CASE EVENT DATE: 20211130
